FAERS Safety Report 8340316-X (Version None)
Quarter: 2012Q2

REPORT INFORMATION
  Report Type: 
  Country: None (occurrence: None)
  Receive Date: 20120507
  Receipt Date: 20120507
  Transmission Date: 20120825
  Serious: Yes (Other)
  Sender: FDA-Public Use
  Company Number: None

PATIENT
  Sex: Male
  Weight: 960.25 kg

DRUGS (1)
  1. CELEXA [Suspect]
     Indication: MAJOR DEPRESSION
     Dosage: |DOSAGETEXT: 60.0 MG||STRENGTH: 40MG|
     Dates: start: 20050606, end: 20120202

REACTIONS (1)
  - ELECTROCARDIOGRAM QT PROLONGED [None]
